FAERS Safety Report 5530252-6 (Version None)
Quarter: 2007Q4

REPORT INFORMATION
  Report Type: 
  Country: None (occurrence: None)
  Receive Date: 20071127
  Receipt Date: 20071127
  Transmission Date: 20080405
  Serious: No
  Sender: FDA-Public Use
  Company Number: None

PATIENT
  Sex: Male
  Weight: 77.1115 kg

DRUGS (1)
  1. CHANTIX [Suspect]
     Indication: SMOKING CESSATION THERAPY
     Dosage: 1 MG 2 TIMES A DAY PO
     Route: 048
     Dates: start: 20071031, end: 20071126

REACTIONS (9)
  - ABNORMAL BEHAVIOUR [None]
  - ALCOHOL USE [None]
  - AMNESIA [None]
  - CRYING [None]
  - DEPRESSION [None]
  - EMOTIONAL DISORDER [None]
  - MOOD SWINGS [None]
  - NIGHTMARE [None]
  - SLEEP DISORDER [None]
